FAERS Safety Report 21792063 (Version 1)
Quarter: 2022Q4

REPORT INFORMATION
  Report Type: Report from Study
  Country: BR (occurrence: BR)
  Receive Date: 20221229
  Receipt Date: 20221229
  Transmission Date: 20230112
  Serious: Yes (Hospitalization)
  Sender: FDA-Public Use
  Company Number: BR-JNJFOC-20221247083

PATIENT
  Sex: Female
  Weight: 62 kg

DRUGS (2)
  1. SIMPONI [Suspect]
     Active Substance: GOLIMUMAB
     Indication: Rheumatoid arthritis
     Route: 058
     Dates: start: 20180313
  2. SIMPONI [Suspect]
     Active Substance: GOLIMUMAB

REACTIONS (10)
  - Limb injury [Not Recovered/Not Resolved]
  - Fall [Unknown]
  - Road traffic accident [Unknown]
  - Inflammation [Unknown]
  - Influenza [Recovering/Resolving]
  - Injection site haematoma [Recovering/Resolving]
  - Arthralgia [Not Recovered/Not Resolved]
  - COVID-19 [Recovered/Resolved]
  - Oropharyngeal pain [Unknown]
  - Drug ineffective [Unknown]

NARRATIVE: CASE EVENT DATE: 20180101
